FAERS Safety Report 25959422 (Version 2)
Quarter: 2025Q4

REPORT INFORMATION
  Report Type: Spontaneous
  Country: EU (occurrence: EU)
  Receive Date: 20251026
  Receipt Date: 20251031
  Transmission Date: 20260118
  Serious: Yes (Hospitalization, Other)
  Sender: CELLTRION
  Company Number: None

PATIENT

DRUGS (2)
  1. YUFLYMA [Suspect]
     Active Substance: ADALIMUMAB-AATY
     Indication: Crohn^s disease
     Dosage: 1 DOSAGE FORM
     Route: 058
     Dates: start: 202403, end: 202404
  2. YUFLYMA [Suspect]
     Active Substance: ADALIMUMAB-AATY

REACTIONS (4)
  - Cardiac failure [Recovered/Resolved with Sequelae]
  - Dilated cardiomyopathy [Recovered/Resolved with Sequelae]
  - Ventricular dysfunction [Recovered/Resolved with Sequelae]
  - Ventricular extrasystoles [Recovered/Resolved with Sequelae]

NARRATIVE: CASE EVENT DATE: 20240401
